FAERS Safety Report 10159277 (Version 1)
Quarter: 2014Q2

REPORT INFORMATION
  Report Type: Spontaneous
  Country: US (occurrence: None)
  Receive Date: 20140506
  Receipt Date: 20140506
  Transmission Date: 20141212
  Serious: Yes (Other)
  Sender: FDA-Public Use
  Company Number: US-ALSI-201400079

PATIENT
  Age: 80 Year
  Sex: Female
  Weight: 54 kg

DRUGS (13)
  1. CARBON DIOXIDE [Suspect]
     Indication: LAPAROSCOPIC SURGERY
     Route: 033
  2. FENTANYL [Concomitant]
  3. LIDOCAINE [Concomitant]
  4. ETOMIDATE [Concomitant]
  5. ROCURONIUM [Concomitant]
  6. DESFLURANE [Concomitant]
  7. OXYGEN [Concomitant]
  8. AIR, MEDICINAL [Concomitant]
  9. DEXAMETHASONE [Concomitant]
  10. WARFARIN [Concomitant]
  11. DIGOXIN [Concomitant]
  12. METOPROLOL [Concomitant]
  13. OMEPRAZOLE [Concomitant]

REACTIONS (3)
  - Subcutaneous emphysema [None]
  - PO2 increased [None]
  - Respiratory rate increased [None]
